FAERS Safety Report 4582282-9 (Version None)
Quarter: 2005Q1

REPORT INFORMATION
  Report Type: 
  Country: None (occurrence: None)
  Receive Date: 20050127
  Receipt Date: 20040927
  Transmission Date: 20050727
  Serious: No
  Sender: FDA-Public Use
  Company Number: USA040979345

PATIENT
  Age: 40 Year
  Sex: Female
  Weight: 63 kg

DRUGS (2)
  1. STRATTERA [Suspect]
     Indication: ATTENTION DEFICIT/HYPERACTIVITY DISORDER
     Dosage: 40 MG/L DAY
     Dates: start: 20040923
  2. SYNTHROID [Concomitant]

REACTIONS (4)
  - DRY MOUTH [None]
  - NASAL DISCOMFORT [None]
  - NAUSEA [None]
  - SOMNOLENCE [None]
